FAERS Safety Report 9906656 (Version 1)
Quarter: 2014Q1

REPORT INFORMATION
  Report Type: Spontaneous
  Country: AT (occurrence: AT)
  Receive Date: 20140218
  Receipt Date: 20140218
  Transmission Date: 20141002
  Serious: Yes (Death)
  Sender: FDA-Public Use
  Company Number: AT-NAPPMUNDI-DEU-2014-0013618

PATIENT
  Age: 34 Year
  Sex: Male

DRUGS (1)
  1. SUBSTITOL RETARD KAPSELN [Suspect]
     Indication: PRODUCT USED FOR UNKNOWN INDICATION
     Route: 042

REACTIONS (2)
  - Overdose [Fatal]
  - Drug abuse [Fatal]
